FAERS Safety Report 10877933 (Version 1)
Quarter: 2015Q1

REPORT INFORMATION
  Report Type: Spontaneous
  Country: US (occurrence: None)
  Receive Date: 20150224
  Receipt Date: 20150224
  Transmission Date: 20150721
  Serious: Yes (Disabling, Other)
  Sender: FDA-Public Use
  Company Number: None

PATIENT
  Age: 68 Year
  Sex: Female
  Weight: 87.09 kg

DRUGS (19)
  1. PREDNISONE. [Concomitant]
     Active Substance: PREDNISONE
  2. PILOCARPINE [Concomitant]
     Active Substance: PILOCARPINE
  3. LASTACAFT [Concomitant]
     Active Substance: ALCAFTADINE
  4. MULTIPLE VITAMIN [Concomitant]
     Active Substance: VITAMINS
  5. DEPAKOTE ER [Concomitant]
     Active Substance: DIVALPROEX SODIUM
  6. VITAMIN D2 [Concomitant]
     Active Substance: ERGOCALCIFEROL
  7. FORTEO [Suspect]
     Active Substance: TERIPARATIDE
     Indication: OSTEOPOROSIS
     Dosage: 28 SUB C-DOSES INJECT 20 MCG.
     Dates: start: 20150119, end: 20150121
  8. LEVOTHYROXINE [Concomitant]
     Active Substance: LEVOTHYROXINE
  9. CENTRUM SILVER [Concomitant]
     Active Substance: VITAMINS
  10. PERCOCET [Concomitant]
     Active Substance: ACETAMINOPHEN\OXYCODONE HYDROCHLORIDE
  11. PROTONIX [Concomitant]
     Active Substance: PANTOPRAZOLE SODIUM
  12. METOPROLOL [Concomitant]
     Active Substance: METOPROLOL
  13. URSODIOL. [Concomitant]
     Active Substance: URSODIOL
  14. RESTASIS [Concomitant]
     Active Substance: CYCLOSPORINE
  15. BACLOFEN. [Concomitant]
     Active Substance: BACLOFEN
  16. PAXIL CR [Concomitant]
     Active Substance: PAROXETINE HYDROCHLORIDE
  17. CALCIUM [Concomitant]
     Active Substance: CALCIUM
  18. VITAMIN C [Concomitant]
     Active Substance: ASCORBIC ACID
  19. NEURONTIN [Concomitant]
     Active Substance: GABAPENTIN

REACTIONS (8)
  - Sputum abnormal [None]
  - Nausea [None]
  - Dizziness [None]
  - Rhinorrhoea [None]
  - Choking [None]
  - Cough [None]
  - Throat tightness [None]
  - Lethargy [None]

NARRATIVE: CASE EVENT DATE: 20150121
